FAERS Safety Report 7356542-2 (Version None)
Quarter: 2011Q1

REPORT INFORMATION
  Report Type: 
  Country: None (occurrence: None)
  Receive Date: 20110316
  Receipt Date: 20110302
  Transmission Date: 20110831
  Serious: Yes (Other)
  Sender: FDA-Public Use
  Company Number: PHEH2009US00593

PATIENT
  Sex: Male

DRUGS (10)
  1. RADIATION [Concomitant]
     Indication: METASTASIS
  2. MEGACE [Concomitant]
  3. ZOLOFT [Concomitant]
  4. OXYCONTIN [Concomitant]
  5. DETROL [Concomitant]
  6. PRILOSEC [Concomitant]
  7. CASODEX [Concomitant]
  8. ZOMETA [Suspect]
     Indication: PROSTATE CANCER METASTATIC
     Dosage: 4 MG MONTHLY
     Route: 042
     Dates: start: 20040101, end: 20041201
  9. LUPRON [Concomitant]
  10. MEGESTROL ACETATE [Concomitant]

REACTIONS (15)
  - ANXIETY [None]
  - VOMITING [None]
  - INTERVERTEBRAL DISC PROTRUSION [None]
  - BONE DISORDER [None]
  - EYE MOVEMENT DISORDER [None]
  - PERIODONTAL DISEASE [None]
  - NAUSEA [None]
  - SPEECH DISORDER [None]
  - PAIN IN JAW [None]
  - LOSS OF CONSCIOUSNESS [None]
  - PROSTATIC SPECIFIC ANTIGEN INCREASED [None]
  - DIARRHOEA [None]
  - OSTEOSCLEROSIS [None]
  - BACK PAIN [None]
  - TOOTH DISORDER [None]
